FAERS Safety Report 5148375-2 (Version None)
Quarter: 2006Q4

REPORT INFORMATION
  Report Type: 
  Country: None (occurrence: None)
  Receive Date: 20061106
  Receipt Date: 20061024
  Transmission Date: 20070319
  Serious: Yes (Other)
  Sender: FDA-Public Use
  Company Number: 2006129754

PATIENT
  Age: 35 Year
  Sex: Male

DRUGS (1)
  1. RELPAX [Suspect]
     Indication: HEADACHE
     Dosage: 40 MG (20 MG,2 IN 1 D), ORAL
     Route: 048
     Dates: start: 20060807, end: 20061007

REACTIONS (1)
  - COMA [None]
